FAERS Safety Report 4661624-X (Version None)
Quarter: 2005Q2

REPORT INFORMATION
  Report Type: 
  Country: None (occurrence: None)
  Receive Date: 20050513
  Receipt Date: 20040519
  Transmission Date: 20051028
  Serious: Yes (Hospitalization)
  Sender: FDA-Public Use
  Company Number: 200413935US

PATIENT
  Sex: Female
  Weight: 70.5 kg

DRUGS (10)
  1. LOVENOX [Suspect]
     Indication: AORTIC VALVE REPLACEMENT
     Route: 058
     Dates: start: 20040508, end: 20040514
  2. LOVENOX [Suspect]
     Indication: ATRIAL FIBRILLATION
     Route: 058
     Dates: start: 20040508, end: 20040514
  3. CARDIZEM [Concomitant]
     Dosage: DOSE: UNK
  4. LANOXIN [Concomitant]
     Dosage: DOSE: UNK
  5. FOSAMAX [Concomitant]
     Dosage: DOSE: UNK
  6. MULTIVITAMINS, PLAIN [Concomitant]
     Dosage: DOSE: UNK
  7. POTASSIUM CHLORIDE [Concomitant]
     Dosage: DOSE: UNK
  8. LASIX [Concomitant]
     Dosage: DOSE: UNK
  9. HERBAL PREPARATION [Concomitant]
     Dosage: DOSE: UNK
  10. COUMADIN [Concomitant]
     Dosage: DOSE: NOT PROVIDED
     Dates: start: 20040512, end: 20040514

REACTIONS (9)
  - ASTHENIA [None]
  - BACK PAIN [None]
  - BLOOD GLUCOSE INCREASED [None]
  - CREATININE RENAL CLEARANCE DECREASED [None]
  - HAEMOGLOBIN DECREASED [None]
  - HYPOAESTHESIA [None]
  - SPINAL COLUMN STENOSIS [None]
  - SPINAL HAEMATOMA [None]
  - URINARY RETENTION [None]
